FAERS Safety Report 13052180 (Version 1)
Quarter: 2016Q4

REPORT INFORMATION
  Report Type: Spontaneous
  Country: US (occurrence: US)
  Receive Date: 20161221
  Receipt Date: 20161221
  Transmission Date: 20170207
  Serious: No
  Sender: FDA-Public Use
  Company Number: US-APOTEX-2016AP014404

PATIENT
  Sex: Female

DRUGS (2)
  1. CLARISPRAY NASAL ALLERGY [Suspect]
     Active Substance: FLUTICASONE PROPIONATE
     Indication: NASOPHARYNGITIS
  2. CLARISPRAY NASAL ALLERGY [Suspect]
     Active Substance: FLUTICASONE PROPIONATE
     Indication: HYPERSENSITIVITY
     Dosage: SPRAYED ONCE IN EACH NOSTRIL
     Route: 055

REACTIONS (5)
  - Drug ineffective [Recovered/Resolved]
  - Medication error [Recovered/Resolved]
  - Hypersensitivity [Recovered/Resolved]
  - Nasal discomfort [Recovered/Resolved]
  - Parosmia [Recovered/Resolved]
